FAERS Safety Report 21756169 (Version 3)
Quarter: 2022Q4

REPORT INFORMATION
  Report Type: Spontaneous
  Country: GB (occurrence: GB)
  Receive Date: 20221220
  Receipt Date: 20221230
  Transmission Date: 20230113
  Serious: Yes (Hospitalization, Other)
  Sender: FDA-Public Use
  Company Number: GB-BAUSCH-BL-2022-027523

PATIENT
  Age: 67 Year
  Sex: Female

DRUGS (7)
  1. DILTIAZEM HYDROCHLORIDE [Suspect]
     Active Substance: DILTIAZEM HYDROCHLORIDE
     Indication: Product used for unknown indication
     Dosage: 23 TABLETS, QD
     Route: 065
  2. ATORVASTATIN [Concomitant]
     Active Substance: ATORVASTATIN
     Indication: Product used for unknown indication
  3. DILTIAZEM HYDROCHLORIDE [Concomitant]
     Active Substance: DILTIAZEM HYDROCHLORIDE
     Indication: Product used for unknown indication
  4. DIGOXIN [Concomitant]
     Active Substance: DIGOXIN
     Indication: Product used for unknown indication
     Route: 065
  5. ALBUTEROL [Concomitant]
     Active Substance: ALBUTEROL
     Indication: Product used for unknown indication
  6. IRON [Concomitant]
     Active Substance: IRON
     Indication: Product used for unknown indication
  7. VITAMIN B12 [Concomitant]
     Active Substance: CYANOCOBALAMIN
     Indication: Product used for unknown indication

REACTIONS (41)
  - Blood disorder [Unknown]
  - Nephrolithiasis [Unknown]
  - Neoplasm malignant [Unknown]
  - Diabetes mellitus [Unknown]
  - Hypertension [Unknown]
  - Weight decreased [Unknown]
  - Thermoanaesthesia [Unknown]
  - Fall [Unknown]
  - Blood glucose abnormal [Unknown]
  - Hypoaesthesia [Unknown]
  - Movement disorder [Unknown]
  - Limb injury [Unknown]
  - Nervous system disorder [Unknown]
  - Sensory loss [Unknown]
  - Illness [Unknown]
  - Pruritus [Recovered/Resolved]
  - Gait disturbance [Unknown]
  - Rash macular [Unknown]
  - Iron deficiency [Unknown]
  - Full blood count abnormal [Unknown]
  - Skin discolouration [Unknown]
  - Anxiety [Unknown]
  - Muscle spasms [Unknown]
  - Blister [Unknown]
  - Stress [Unknown]
  - Hyperhidrosis [Unknown]
  - Renal disorder [Unknown]
  - Coagulopathy [Unknown]
  - Visual impairment [Unknown]
  - Blood blister [Unknown]
  - Heart rate increased [Unknown]
  - Heart rate irregular [Unknown]
  - Dyspnoea [Unknown]
  - Drug hypersensitivity [Unknown]
  - Dizziness [Unknown]
  - Abdominal pain upper [Unknown]
  - Insomnia [Unknown]
  - Nausea [Unknown]
  - Headache [Unknown]
  - Extra dose administered [Unknown]
  - Product packaging counterfeit [Unknown]
